FAERS Safety Report 4982693-3 (Version None)
Quarter: 2006Q2

REPORT INFORMATION
  Report Type: 
  Country: None (occurrence: None)
  Receive Date: 20060425
  Receipt Date: 20060109
  Transmission Date: 20061013
  Serious: Yes (Hospitalization, Other)
  Sender: FDA-Public Use
  Company Number: US-MERCK-0601USA01302

PATIENT
  Age: 37 Year
  Sex: Male

DRUGS (7)
  1. VIOXX [Suspect]
     Route: 048
  2. DARVOCET [Concomitant]
     Route: 065
  3. VICODIN [Concomitant]
     Route: 065
  4. OXYCODONE [Concomitant]
     Route: 065
  5. LISINOPRIL [Concomitant]
     Route: 065
  6. COGENTIN [Concomitant]
     Route: 065
  7. BENADRYL [Concomitant]
     Route: 065

REACTIONS (11)
  - CARDIAC FAILURE CONGESTIVE [None]
  - CEREBROVASCULAR ACCIDENT [None]
  - CHEST PAIN [None]
  - DEPRESSION [None]
  - DRUG INEFFECTIVE [None]
  - HEART RATE DECREASED [None]
  - HYPERTENSION [None]
  - MENTAL DISORDER [None]
  - MIGRAINE [None]
  - MYOCARDIAL INFARCTION [None]
  - PAIN [None]
